FAERS Safety Report 7801955-5 (Version None)
Quarter: 2011Q4

REPORT INFORMATION
  Report Type: 
  Country: None (occurrence: None)
  Receive Date: 20111007
  Receipt Date: 20111007
  Transmission Date: 20120403
  Serious: Yes (Hospitalization)
  Sender: FDA-Public Use
  Company Number: None

PATIENT
  Age: 49 Year
  Sex: Female
  Weight: 61.234 kg

DRUGS (1)
  1. DULCOLAX [Suspect]
     Indication: CONSTIPATION
     Dosage: ONE PO
     Route: 048
     Dates: start: 20111002, end: 20111002

REACTIONS (8)
  - PORTAL VEIN THROMBOSIS [None]
  - HYPERHIDROSIS [None]
  - LARGE INTESTINAL ULCER [None]
  - GASTROINTESTINAL DISORDER [None]
  - ABDOMINAL PAIN [None]
  - DIARRHOEA [None]
  - HAEMATOCHEZIA [None]
  - TACHYCARDIA [None]
